FAERS Safety Report 5365342-4 (Version None)
Quarter: 2007Q2

REPORT INFORMATION
  Report Type: 
  Country: None (occurrence: None)
  Receive Date: 20070621
  Receipt Date: 20070618
  Transmission Date: 20071010
  Serious: Yes (Hospitalization)
  Sender: FDA-Public Use
  Company Number: DL2007203

PATIENT
  Age: 35 Year
  Sex: Female

DRUGS (2)
  1. MIFEPRISTONE TABLETS, 200 MG (DANCO LABS) [Suspect]
     Indication: ABORTION INDUCED
     Dosage: 200 MG, ORAL
     Route: 048
     Dates: start: 20070508
  2. MISOPROSTOL [Suspect]
     Dosage: 800 MCG, BUCCAL
     Route: 002
     Dates: start: 20070510, end: 20070512

REACTIONS (5)
  - DRUG INEFFECTIVE [None]
  - INDUCED ABORTION FAILED [None]
  - PLACENTA ACCRETA [None]
  - SURGICAL FAILURE [None]
  - UTERINE LEIOMYOMA [None]
